FAERS Safety Report 5142022-1 (Version None)
Quarter: 2006Q4

REPORT INFORMATION
  Report Type: 
  Country: None (occurrence: None)
  Receive Date: 20061030
  Receipt Date: 20061030
  Transmission Date: 20070319
  Serious: No
  Sender: FDA-Public Use
  Company Number: None

PATIENT

DRUGS (2)
  1. FENTANYL CITRATE [Suspect]
     Dosage: FILM, EXTENDED RELEASE
  2. FENTANYL CITRATE [Suspect]
     Dosage: FILM,EXTENDED RELEASED

REACTIONS (4)
  - DRUG DISPENSING ERROR [None]
  - DRUG PRESCRIBING ERROR [None]
  - INCORRECT DOSE ADMINISTERED [None]
  - MEDICATION ERROR [None]
